FAERS Safety Report 8163758-4 (Version None)
Quarter: 2012Q1

REPORT INFORMATION
  Report Type: 
  Country: None (occurrence: None)
  Receive Date: 20120224
  Receipt Date: 20120219
  Transmission Date: 20120608
  Serious: Yes (Death, Hospitalization)
  Sender: FDA-Public Use
  Company Number: PHHY2012DE014806

PATIENT
  Sex: Female
  Weight: 90 kg

DRUGS (13)
  1. INSULIN [Concomitant]
     Indication: DIABETES MELLITUS
  2. HMG COA REDUCTASE INHIBITORS [Concomitant]
  3. DIOVAN [Suspect]
     Dosage: 80 MG, PER DAY
     Dates: start: 20100429
  4. THIENOPYRIDINES [Concomitant]
  5. ACE INHIBITORS [Concomitant]
     Dates: start: 20090311, end: 20100429
  6. ANGIOTENSIN II ANTAGONISTS [Concomitant]
     Dates: start: 20081217, end: 20090311
  7. NITRATES [Concomitant]
  8. EXFORGE [Suspect]
     Indication: HYPERTENSION
     Dosage: 1 DF, QD
     Route: 048
     Dates: start: 20000101
  9. ANTIDEPRESSANTS [Concomitant]
  10. DIURETICS [Concomitant]
  11. AMLODIPINE [Concomitant]
     Dates: start: 20100429
  12. ANTICOAGULANTS [Concomitant]
  13. BETA BLOCKING AGENTS [Concomitant]

REACTIONS (3)
  - HYPERTENSION [None]
  - DEATH [None]
  - BLOOD GLUCOSE INCREASED [None]
